FAERS Safety Report 11227628 (Version 2)
Quarter: 2015Q3

REPORT INFORMATION
  Report Type: Spontaneous
  Country: IT (occurrence: IT)
  Receive Date: 20150630
  Receipt Date: 20150707
  Transmission Date: 20151125
  Serious: Yes (Hospitalization)
  Sender: FDA-Public Use
  Company Number: IT-ACTAVIS-2015-12375

PATIENT
  Age: 55 Year
  Sex: Male

DRUGS (2)
  1. OXALIPLATINO ACTAVIS [Suspect]
     Active Substance: OXALIPLATIN
     Indication: COLON CANCER RECURRENT
     Dosage: 130 MG, DAILY
     Route: 042
     Dates: start: 20150506, end: 20150506
  2. LEDERFOLIN [Concomitant]
     Active Substance: LEUCOVORIN CALCIUM
     Indication: PRODUCT USED FOR UNKNOWN INDICATION
     Dosage: 320 MG, UNKNOWN
     Route: 042

REACTIONS (2)
  - Respiratory arrest [Recovered/Resolved]
  - Epilepsy [Recovered/Resolved]

NARRATIVE: CASE EVENT DATE: 20150506
